FAERS Safety Report 15840069 (Version 3)
Quarter: 2019Q2

REPORT INFORMATION
  Report Type: Report from Study
  Country: EC (occurrence: EC)
  Receive Date: 20190117
  Receipt Date: 20190403
  Transmission Date: 20190711
  Serious: Yes (Hospitalization, Other)
  Sender: FDA-Public Use
  Company Number: EC-SEATTLE GENETICS-2018SGN03228

PATIENT
  Sex: Male

DRUGS (1)
  1. BRENTUXIMAB VEDOTIN-MPI [Suspect]
     Active Substance: BRENTUXIMAB VEDOTIN
     Indication: HODGKIN^S DISEASE
     Dosage: 50 MG, Q21D
     Route: 042
     Dates: start: 20170501

REACTIONS (6)
  - Body temperature fluctuation [Unknown]
  - Pain in extremity [Unknown]
  - Swelling face [Unknown]
  - Pyrexia [Unknown]
  - Abdominal pain upper [Unknown]
  - Drug ineffective [Unknown]
